FAERS Safety Report 5562802-8 (Version None)
Quarter: 2007Q4

REPORT INFORMATION
  Report Type: 
  Country: None (occurrence: None)
  Receive Date: 20071217
  Receipt Date: 20071206
  Transmission Date: 20080405
  Serious: Yes (Other)
  Sender: FDA-Public Use
  Company Number: PHHY2007CA00848

PATIENT
  Sex: Female

DRUGS (1)
  1. CLOZARIL [Suspect]
     Dosage: UNK, UNK
     Route: 048
     Dates: start: 20070416, end: 20070827

REACTIONS (3)
  - ORTHOSTATIC HYPERTENSION [None]
  - PSYCHOMOTOR RETARDATION [None]
  - SEDATION [None]
